FAERS Safety Report 21837541 (Version 4)
Quarter: 2025Q1

REPORT INFORMATION
  Report Type: Spontaneous
  Country: US (occurrence: US)
  Receive Date: 20230109
  Receipt Date: 20250226
  Transmission Date: 20250408
  Serious: Yes (Other)
  Sender: PFIZER
  Company Number: US-PFIZER INC-PV202300001315

PATIENT
  Age: 66 Year
  Sex: Male

DRUGS (1)
  1. XELJANZ XR [Suspect]
     Active Substance: TOFACITINIB CITRATE

REACTIONS (6)
  - Coronary arterial stent insertion [Unknown]
  - Nephrolithiasis [Unknown]
  - Lyme disease [Unknown]
  - Product dose omission issue [Unknown]
  - Malaise [Unknown]
  - Pain [Recovering/Resolving]
